FAERS Safety Report 24607775 (Version 1)
Quarter: 2024Q4

REPORT INFORMATION
  Report Type: Spontaneous
  Country: US (occurrence: None)
  Receive Date: 20241111
  Receipt Date: 20241111
  Transmission Date: 20250114
  Serious: Yes (Death, Life-Threatening, Hospitalization)
  Sender: Public
  Company Number: None

PATIENT
  Age: 86 Year
  Sex: Male
  Weight: 63 kg

DRUGS (6)
  1. KEYTRUDA [Suspect]
     Active Substance: PEMBROLIZUMAB
     Indication: Neoplasm malignant
     Dates: start: 20240220, end: 20240403
  2. ALIMTA [Suspect]
     Active Substance: PEMETREXED DISODIUM
  3. FREESTYLE LIBRE [Concomitant]
  4. BGETA BLOCKER [Concomitant]
  5. ASPIRIN [Concomitant]
     Active Substance: ASPIRIN
  6. DAILY MVI [Concomitant]

REACTIONS (3)
  - Pneumonitis [None]
  - Product communication issue [None]
  - General physical health deterioration [None]

NARRATIVE: CASE EVENT DATE: 20240403
